FAERS Safety Report 6111066-5 (Version None)
Quarter: 2009Q1

REPORT INFORMATION
  Report Type: 
  Country: None (occurrence: None)
  Receive Date: 20090306
  Receipt Date: 20090306
  Transmission Date: 20090719
  Serious: Yes (Life-Threatening)
  Sender: FDA-Public Use
  Company Number: None

PATIENT
  Age: 43 Year
  Sex: Male
  Weight: 74.8435 kg

DRUGS (1)
  1. TESTOSTERONE CYPIONATE [Suspect]
     Indication: HYPOGONADISM
     Dosage: 1 CC EVERY 2 WEEKS IM
     Route: 030
     Dates: start: 20071001, end: 20080115

REACTIONS (7)
  - ASTHENIA [None]
  - DEPRESSION [None]
  - FATIGUE [None]
  - LIBIDO DECREASED [None]
  - MALAISE [None]
  - MUSCLE ATROPHY [None]
  - PRODUCT QUALITY ISSUE [None]
